FAERS Safety Report 9565169 (Version 1)
Quarter: 2013Q3

REPORT INFORMATION
  Report Type: Spontaneous
  Country: US (occurrence: US)
  Receive Date: 20130930
  Receipt Date: 20130930
  Transmission Date: 20140515
  Serious: Yes (Hospitalization)
  Sender: FDA-Public Use
  Company Number: US-009507513-1309USA009900

PATIENT
  Sex: 0

DRUGS (1)
  1. SINGULAIR [Suspect]
     Indication: RHINITIS

REACTIONS (2)
  - Adverse event [Unknown]
  - Drug ineffective [Unknown]
